FAERS Safety Report 7530065-X (Version None)
Quarter: 2011Q2

REPORT INFORMATION
  Report Type: 
  Country: None (occurrence: None)
  Receive Date: 20110607
  Receipt Date: 20110602
  Transmission Date: 20111010
  Serious: Yes (Death, Other)
  Sender: FDA-Public Use
  Company Number: PHHY2011IL47893

PATIENT
  Age: 66 Year
  Sex: Female

DRUGS (1)
  1. DESFERAL [Suspect]
     Dosage: 50 MG/KG 5 DAYS A WEEK

REACTIONS (2)
  - SEPTIC SHOCK [None]
  - GENERAL PHYSICAL HEALTH DETERIORATION [None]
